FAERS Safety Report 23558164 (Version 2)
Quarter: 2024Q1

REPORT INFORMATION
  Report Type: Spontaneous
  Country: US (occurrence: None)
  Receive Date: 20240223
  Receipt Date: 20240227
  Transmission Date: 20240409
  Serious: Yes (Hospitalization, Other)
  Sender: FDA-Public Use
  Company Number: US-ROCHE-3513152

PATIENT
  Sex: Female
  Weight: 76.726 kg

DRUGS (22)
  1. RITUXAN [Suspect]
     Active Substance: RITUXIMAB
     Indication: Rheumatoid arthritis
     Route: 041
  2. ACTEMRA [Suspect]
     Active Substance: TOCILIZUMAB
     Indication: Rheumatoid arthritis
     Route: 065
  3. VITAMIN B12 [Concomitant]
     Active Substance: CYANOCOBALAMIN
  4. VITAMIN D3 [Concomitant]
     Active Substance: CHOLECALCIFEROL
  5. CALCIUM ACETYLSALICYLATE [Concomitant]
  6. DULOXETINE [Concomitant]
     Active Substance: DULOXETINE
  7. DILAUDID [Concomitant]
     Active Substance: HYDROMORPHONE HYDROCHLORIDE
  8. ARAVA [Concomitant]
     Active Substance: LEFLUNOMIDE
     Dates: start: 1999
  9. SYNTHROID [Concomitant]
     Active Substance: LEVOTHYROXINE SODIUM
  10. MIDODRINE [Concomitant]
     Active Substance: MIDODRINE
  11. OMEPRAZOLE [Concomitant]
     Active Substance: OMEPRAZOLE
  12. PREDNISONE [Concomitant]
     Active Substance: PREDNISONE
  13. PROLIA [Concomitant]
     Active Substance: DENOSUMAB
  14. SALAGEN [Concomitant]
     Active Substance: PILOCARPINE HYDROCHLORIDE
  15. CRESTOR [Concomitant]
     Active Substance: ROSUVASTATIN CALCIUM
  16. ZOLOFT [Concomitant]
     Active Substance: SERTRALINE HYDROCHLORIDE
  17. TOPAMAX [Concomitant]
     Active Substance: TOPIRAMATE
  18. TRAZODONE [Concomitant]
     Active Substance: TRAZODONE HYDROCHLORIDE
  19. FLOVENT [Concomitant]
     Active Substance: FLUTICASONE PROPIONATE
  20. FLONASE [Concomitant]
     Active Substance: FLUTICASONE PROPIONATE
  21. PYRIDOSTIGMINE [Concomitant]
     Active Substance: PYRIDOSTIGMINE
  22. SYMBICORT [Concomitant]
     Active Substance: BUDESONIDE\FORMOTEROL FUMARATE DIHYDRATE
     Indication: Asthma

REACTIONS (14)
  - Diarrhoea [Unknown]
  - Pain [Not Recovered/Not Resolved]
  - Headache [Unknown]
  - Autonomic neuropathy [Unknown]
  - Hernia [Not Recovered/Not Resolved]
  - Cystitis interstitial [Unknown]
  - Muscle spasticity [Unknown]
  - Anxiety [Unknown]
  - Asthma [Unknown]
  - Osteoporosis [Unknown]
  - Hyperlipidaemia [Unknown]
  - Orthostatic hypotension [Unknown]
  - Bone disorder [Not Recovered/Not Resolved]
  - Blood calcium decreased [Unknown]

NARRATIVE: CASE EVENT DATE: 20120101
